FAERS Safety Report 9486421 (Version 1)
Quarter: 2013Q3

REPORT INFORMATION
  Report Type: Spontaneous
  Country: US (occurrence: US)
  Receive Date: 20130829
  Receipt Date: 20130829
  Transmission Date: 20140515
  Serious: No
  Sender: FDA-Public Use
  Company Number: US-PFIZER INC-2013249548

PATIENT
  Age: 68 Year
  Sex: Female
  Weight: 93.9 kg

DRUGS (3)
  1. PRISTIQ [Suspect]
     Indication: DEPRESSION
     Dosage: 50MG DAILY
     Dates: start: 2013, end: 201308
  2. EFFEXOR XR [Suspect]
     Indication: DEPRESSION
     Dosage: 150MG DAILY
     Dates: end: 2013
  3. EFFEXOR XR [Suspect]
     Dosage: 150MG DAILY
     Dates: start: 201308

REACTIONS (3)
  - Drug ineffective [Unknown]
  - Hypertension [Unknown]
  - Hypotension [Unknown]
